FAERS Safety Report 18760551 (Version 1)
Quarter: 2021Q1

REPORT INFORMATION
  Report Type: Spontaneous
  Country: US (occurrence: US)
  Receive Date: 20210119
  Receipt Date: 20210119
  Transmission Date: 20210419
  Serious: No
  Sender: FDA-Public Use
  Company Number: US-ROCHE-2470251

PATIENT
  Age: 74 Year

DRUGS (1)
  1. RITUXAN [Suspect]
     Active Substance: RITUXIMAB
     Indication: RHEUMATOID ARTHRITIS
     Dosage: NO
     Route: 065

REACTIONS (4)
  - Swelling [Unknown]
  - Mass [Unknown]
  - Deformity [Unknown]
  - Drug ineffective [Unknown]
